FAERS Safety Report 9959632 (Version 1)
Quarter: 2014Q1

REPORT INFORMATION
  Report Type: Spontaneous
  Country: IT (occurrence: None)
  Receive Date: 20140227
  Receipt Date: 20140227
  Transmission Date: 20141002
  Serious: Yes (Other)
  Sender: FDA-Public Use
  Company Number: B0971820A

PATIENT
  Age: 42 Year
  Sex: Female

DRUGS (5)
  1. ABACAVIR SULPHATE [Suspect]
     Indication: ANTIRETROVIRAL THERAPY
     Dates: start: 200808
  2. LAMIVUDINE [Suspect]
     Indication: ANTIRETROVIRAL THERAPY
     Dates: start: 200808
  3. TENOFOVIR DISOPROXIL FUMARATE [Suspect]
     Indication: ANTIRETROVIRAL THERAPY
  4. EMTRICITABINE [Suspect]
     Indication: ANTIRETROVIRAL THERAPY
  5. ATAZANAVIR [Suspect]
     Indication: ANTIRETROVIRAL THERAPY

REACTIONS (13)
  - Headache [None]
  - Paraesthesia [None]
  - Central nervous system lesion [None]
  - Susac^s syndrome [None]
  - Immune reconstitution inflammatory syndrome [None]
  - Infection reactivation [None]
  - Haematotoxicity [None]
  - Diabetes mellitus [None]
  - Osteoporosis [None]
  - Spinal fracture [None]
  - Cognitive disorder [None]
  - Blindness [None]
  - Deafness [None]
